FAERS Safety Report 12671065 (Version 1)
Quarter: 2016Q3

REPORT INFORMATION
  Report Type: Spontaneous
  Country: US (occurrence: None)
  Receive Date: 20160819
  Receipt Date: 20160819
  Transmission Date: 20161109
  Serious: No
  Sender: FDA-Public Use
  Company Number: None

PATIENT
  Age: 78 Year
  Sex: Female

DRUGS (1)
  1. TIROSINT [Suspect]
     Active Substance: LEVOTHYROXINE SODIUM
     Indication: HYPOTHYROIDISM
     Route: 048

REACTIONS (8)
  - Musculoskeletal stiffness [None]
  - Rash [None]
  - Speech disorder [None]
  - Oral pain [None]
  - Heart rate increased [None]
  - Product substitution issue [None]
  - Balance disorder [None]
  - Asthenia [None]

NARRATIVE: CASE EVENT DATE: 20160803
